FAERS Safety Report 16676522 (Version 3)
Quarter: 2019Q4

REPORT INFORMATION
  Report Type: Report from Study
  Country: None (occurrence: BR)
  Receive Date: 20190807
  Receipt Date: 20191227
  Transmission Date: 20200122
  Serious: Yes (Disabling, Other)
  Sender: FDA-Public Use
  Company Number: BR-ABBVIE-19K-020-2876557-00

PATIENT
  Age: 50 Year
  Sex: Female
  Weight: 82 kg

DRUGS (4)
  1. HUMIRA [Suspect]
     Active Substance: ADALIMUMAB
     Route: 058
     Dates: start: 20191001
  2. FOLIC ACID. [Concomitant]
     Active Substance: FOLIC ACID
     Indication: PRODUCT USED FOR UNKNOWN INDICATION
     Route: 048
  3. METHOTREXATE. [Concomitant]
     Active Substance: METHOTREXATE
     Indication: RHEUMATOID ARTHRITIS
     Route: 048
  4. HUMIRA [Suspect]
     Active Substance: ADALIMUMAB
     Indication: RHEUMATOID ARTHRITIS
     Route: 058
     Dates: start: 20140102, end: 201905

REACTIONS (15)
  - Product dispensing error [Unknown]
  - Arthralgia [Recovering/Resolving]
  - Arthrodesis [Recovered/Resolved]
  - Joint stiffness [Unknown]
  - Rheumatoid arthritis [Unknown]
  - Carpal tunnel syndrome [Recovering/Resolving]
  - Self esteem decreased [Not Recovered/Not Resolved]
  - Drug ineffective [Not Recovered/Not Resolved]
  - Malabsorption [Not Recovered/Not Resolved]
  - Joint range of motion decreased [Recovering/Resolving]
  - Arthropathy [Recovered/Resolved]
  - Articular calcification [Not Recovered/Not Resolved]
  - Ligament rupture [Recovering/Resolving]
  - Immunodeficiency [Not Recovered/Not Resolved]
  - Rash macular [Not Recovered/Not Resolved]

NARRATIVE: CASE EVENT DATE: 201806
